FAERS Safety Report 4520985-2 (Version None)
Quarter: 2004Q4

REPORT INFORMATION
  Report Type: 
  Country: None (occurrence: None)
  Receive Date: 20041206
  Receipt Date: 20041014
  Transmission Date: 20050328
  Serious: Yes (Hospitalization)
  Sender: FDA-Public Use
  Company Number: 9085

PATIENT
  Age: 51 Year
  Sex: Female

DRUGS (3)
  1. LEUCOVORIN [Suspect]
     Indication: RECTAL CANCER
     Dosage: 75 MG PO
     Route: 048
     Dates: start: 20040915, end: 20041005
  2. IRINOTECAN [Suspect]
     Indication: RECTAL CANCER
     Dosage: 226 MG IV
     Route: 042
     Dates: start: 20040915, end: 20040929
  3. TEGAFUR URACIL [Suspect]
     Indication: RECTAL CANCER
     Dosage: 500 MG PO
     Route: 048
     Dates: start: 20040915, end: 20041005

REACTIONS (3)
  - ANOREXIA [None]
  - DIARRHOEA [None]
  - WHITE BLOOD CELL COUNT DECREASED [None]
